FAERS Safety Report 7939856-4 (Version None)
Quarter: 2011Q4

REPORT INFORMATION
  Report Type: 
  Country: None (occurrence: None)
  Receive Date: 20111125
  Receipt Date: 20111118
  Transmission Date: 20120403
  Serious: Yes (Other)
  Sender: FDA-Public Use
  Company Number: US-BRISTOL-MYERS SQUIBB COMPANY-16241259

PATIENT
  Age: 68 Year
  Sex: Male
  Weight: 101 kg

DRUGS (4)
  1. METOPROLOL TARTRATE [Concomitant]
     Indication: HYPERTENSION
  2. NADOLOL [Suspect]
     Indication: MIGRAINE
     Dates: start: 20111017
  3. SAVELLA [Suspect]
     Indication: MIGRAINE
     Dates: start: 20111017
  4. LYRICA [Suspect]
     Indication: MIGRAINE
     Dosage: CAPS,HARD
     Route: 048
     Dates: start: 20111017

REACTIONS (1)
  - DYSURIA [None]
